FAERS Safety Report 7077206-9 (Version None)
Quarter: 2010Q4

REPORT INFORMATION
  Report Type: 
  Country: None (occurrence: None)
  Receive Date: 20101101
  Receipt Date: 20101026
  Transmission Date: 20110411
  Serious: Yes (Other)
  Sender: FDA-Public Use
  Company Number: PHHY2010US71637

PATIENT
  Sex: Female
  Weight: 93 kg

DRUGS (1)
  1. AFINITOR [Suspect]
     Indication: METASTATIC CARCINOID TUMOUR
     Dosage: 10 MG, QD
     Route: 048
     Dates: start: 20100601, end: 20100601

REACTIONS (2)
  - BLOOD ALKALINE PHOSPHATASE INCREASED [None]
  - DRUG INTOLERANCE [None]
